FAERS Safety Report 5503555-9 (Version None)
Quarter: 2007Q4

REPORT INFORMATION
  Report Type: 
  Country: None (occurrence: None)
  Receive Date: 20071029
  Receipt Date: 20071015
  Transmission Date: 20080405
  Serious: Yes (Other)
  Sender: FDA-Public Use
  Company Number: 2007SP021002

PATIENT
  Age: 50 Year
  Sex: Male

DRUGS (1)
  1. CLARITIN [Suspect]
     Indication: DERMATITIS
     Dosage: 10 MG; QD; PO
     Route: 048
     Dates: start: 20071009, end: 20071010

REACTIONS (6)
  - ASTHENIA [None]
  - COLD SWEAT [None]
  - DIZZINESS [None]
  - HYPOTENSION [None]
  - MALAISE [None]
  - NAUSEA [None]
